FAERS Safety Report 15629187 (Version 2)
Quarter: 2018Q4

REPORT INFORMATION
  Report Type: Spontaneous
  Country: US (occurrence: US)
  Receive Date: 20181116
  Receipt Date: 20181205
  Transmission Date: 20190205
  Serious: No
  Sender: FDA-Public Use
  Company Number: US-ANIPHARMA-2018-US-013810

PATIENT
  Age: 70 Year
  Sex: Female

DRUGS (1)
  1. FLECAINIDE ACETATE (NON-SPECIFIC) [Suspect]
     Active Substance: FLECAINIDE ACETATE
     Indication: ATRIAL FIBRILLATION
     Dosage: TAKES 2 TABLETS EVERY DAY
     Route: 048
     Dates: start: 20180514, end: 20180813

REACTIONS (6)
  - Pollakiuria [Unknown]
  - Heart rate increased [Unknown]
  - Nausea [Unknown]
  - Joint swelling [Unknown]
  - Palpitations [Unknown]
  - Blood pressure increased [Unknown]

NARRATIVE: CASE EVENT DATE: 20180724
